FAERS Safety Report 8823339 (Version 2)
Quarter: 2012Q4

REPORT INFORMATION
  Report Type: 
  Country: AU (occurrence: AU)
  Receive Date: 20121003
  Receipt Date: 20121012
  Transmission Date: 20130627
  Serious: Yes (Death)
  Sender: FDA-Public Use
  Company Number: AU-NAPPMUNDI-USA-2012-0093840

PATIENT
  Age: 85 Year
  Sex: Female
  Weight: 53 kg

DRUGS (11)
  1. NORSPAN [Suspect]
     Indication: PRODUCT USED FOR UNKNOWN INDICATION
     Route: 048
  2. MORPHINE SULFATE (SIMILAR TO NDA 19-516) [Suspect]
     Indication: PRODUCT USED FOR UNKNOWN INDICATION
     Route: 048
  3. PANADOL OSTEO [Suspect]
     Indication: PAIN
     Dosage: 5.3 gram, daily
     Route: 048
     Dates: start: 20120430, end: 20120630
  4. COVERSYL                           /00790702/ [Concomitant]
     Indication: PRODUCT USED FOR UNKNOWN INDICATION
  5. EXTINE [Concomitant]
     Indication: PRODUCT USED FOR UNKNOWN INDICATION
  6. FEMARA [Concomitant]
     Indication: PRODUCT USED FOR UNKNOWN INDICATION
  7. ISCOVER [Concomitant]
     Indication: PRODUCT USED FOR UNKNOWN INDICATION
  8. LIPITOR [Concomitant]
     Indication: PRODUCT USED FOR UNKNOWN INDICATION
  9. MEGAFOL [Concomitant]
     Indication: PRODUCT USED FOR UNKNOWN INDICATION
  10. OSTELIN                            /00107901/ [Concomitant]
     Indication: PRODUCT USED FOR UNKNOWN INDICATION
  11. SOMAC [Concomitant]
     Indication: PRODUCT USED FOR UNKNOWN INDICATION

REACTIONS (5)
  - Death [Fatal]
  - Renal impairment [Fatal]
  - Liver function test abnormal [Fatal]
  - Drug ineffective [Unknown]
  - Abdominal discomfort [Unknown]
